FAERS Safety Report 13661686 (Version 2)
Quarter: 2017Q3

REPORT INFORMATION
  Report Type: Report from Study
  Country: MX (occurrence: MX)
  Receive Date: 20170616
  Receipt Date: 20170808
  Transmission Date: 20171127
  Serious: Yes (Hospitalization, Other)
  Sender: FDA-Public Use
  Company Number: MX-BAYER-2016-063046

PATIENT
  Age: 37 Year
  Sex: Female

DRUGS (5)
  1. BETAFERON [Suspect]
     Active Substance: INTERFERON BETA-1B
     Indication: MULTIPLE SCLEROSIS
     Dosage: 1 DF, QOD
     Dates: start: 201505, end: 201703
  2. INTERFERON BETA-1B [INTERFERON BETA-1B] [Suspect]
     Active Substance: INTERFERON BETA-1B
  3. ACETAMINOPHEN. [Concomitant]
     Active Substance: ACETAMINOPHEN
     Dosage: UNK
  4. PARACETAMOL [Concomitant]
     Active Substance: ACETAMINOPHEN
     Dosage: UNK
  5. IBUPROFEN. [Concomitant]
     Active Substance: IBUPROFEN
     Dosage: 1 DF, QD

REACTIONS (64)
  - Paraplegia [Not Recovered/Not Resolved]
  - Pyrexia [Recovered/Resolved]
  - Fatigue [Recovered/Resolved]
  - Headache [Not Recovered/Not Resolved]
  - Weight decreased [Unknown]
  - Gait disturbance [Not Recovered/Not Resolved]
  - Mobility decreased [Not Recovered/Not Resolved]
  - Musculoskeletal disorder [Not Recovered/Not Resolved]
  - Depressed mood [Recovered/Resolved]
  - Musculoskeletal disorder [Recovered/Resolved]
  - Fear [Not Recovered/Not Resolved]
  - Fatigue [None]
  - Peripheral swelling [Not Recovered/Not Resolved]
  - Pain [Recovered/Resolved]
  - Pyrexia [Not Recovered/Not Resolved]
  - Tearfulness [Not Recovered/Not Resolved]
  - Muscular weakness [Not Recovered/Not Resolved]
  - Post procedural discharge [Not Recovered/Not Resolved]
  - Disorientation [Not Recovered/Not Resolved]
  - Pyrexia [Not Recovered/Not Resolved]
  - Fatigue [Not Recovered/Not Resolved]
  - Asthenia [Unknown]
  - Decreased appetite [Not Recovered/Not Resolved]
  - Pyrexia [Not Recovered/Not Resolved]
  - Weight decreased [Not Recovered/Not Resolved]
  - Hemiparesis [Not Recovered/Not Resolved]
  - Depressed mood [Recovered/Resolved]
  - Fatigue [Not Recovered/Not Resolved]
  - Stress [Not Recovered/Not Resolved]
  - Muscle fatigue [Not Recovered/Not Resolved]
  - Pain in extremity [Not Recovered/Not Resolved]
  - Gait disturbance [Not Recovered/Not Resolved]
  - Pain in extremity [Recovered/Resolved]
  - Pyrexia [Not Recovered/Not Resolved]
  - Feeling abnormal [Not Recovered/Not Resolved]
  - Pyrexia [Recovered/Resolved]
  - Depressed mood [Recovered/Resolved]
  - Visual impairment [Not Recovered/Not Resolved]
  - Visual impairment [None]
  - Feeling abnormal [Not Recovered/Not Resolved]
  - Depressed mood [Not Recovered/Not Resolved]
  - Pyrexia [Recovered/Resolved]
  - Depressed mood [Not Recovered/Not Resolved]
  - Nasopharyngitis [Not Recovered/Not Resolved]
  - Musculoskeletal disorder [Not Recovered/Not Resolved]
  - Pyrexia [Recovered/Resolved]
  - Mobility decreased [Recovered/Resolved]
  - Feeling abnormal [Not Recovered/Not Resolved]
  - Anger [Not Recovered/Not Resolved]
  - Monoparesis [Not Recovered/Not Resolved]
  - Hypoaesthesia [Recovered/Resolved]
  - Gait disturbance [Not Recovered/Not Resolved]
  - Fatigue [Unknown]
  - Dizziness [Not Recovered/Not Resolved]
  - Depressed mood [Not Recovered/Not Resolved]
  - Mobility decreased [Not Recovered/Not Resolved]
  - Wound complication [Not Recovered/Not Resolved]
  - Fatigue [Recovering/Resolving]
  - Mood altered [Not Recovered/Not Resolved]
  - Musculoskeletal chest pain [Not Recovered/Not Resolved]
  - Dysstasia [Not Recovered/Not Resolved]
  - Feeling hot [Not Recovered/Not Resolved]
  - Vomiting [Recovered/Resolved]
  - Gait disturbance [Recovering/Resolving]

NARRATIVE: CASE EVENT DATE: 2015
